FAERS Safety Report 12507291 (Version 1)
Quarter: 2016Q2

REPORT INFORMATION
  Report Type: Spontaneous
  Country: None (occurrence: None)
  Receive Date: 20160627
  Receipt Date: 20160627
  Transmission Date: 20160815
  Serious: Yes (Hospitalization)
  Sender: FDA-Public Use
  Company Number: 16-108

PATIENT
  Age: 58 Year
  Sex: Male

DRUGS (2)
  1. PHENYTOIN 200MG [Suspect]
     Active Substance: PHENYTOIN
     Indication: GENERALISED TONIC-CLONIC SEIZURE
     Route: 048
  2. NAPROXEN. [Suspect]
     Active Substance: NAPROXEN
     Indication: BACK PAIN
     Route: 048

REACTIONS (7)
  - Vision blurred [None]
  - Dizziness [None]
  - Drug interaction [None]
  - Vertigo [None]
  - Nystagmus [None]
  - Toxicity to various agents [None]
  - Back pain [None]
